FAERS Safety Report 18686509 (Version 2)
Quarter: 2021Q1

REPORT INFORMATION
  Report Type: Report from Study
  Country: None (occurrence: DE)
  Receive Date: 20201230
  Receipt Date: 20210304
  Transmission Date: 20210419
  Serious: Yes (Hospitalization, Other)
  Sender: FDA-Public Use
  Company Number: DE-ABBVIE-20K-062-3708838-00

PATIENT
  Age: 56 Year
  Sex: Female
  Weight: 116 kg

DRUGS (2)
  1. VALSACOR [Concomitant]
     Active Substance: VALSARTAN
     Indication: HYPERTENSION
     Route: 048
  2. HUMIRA [Suspect]
     Active Substance: ADALIMUMAB
     Indication: PSORIASIS
     Route: 058
     Dates: start: 20100303

REACTIONS (18)
  - Cholecystitis chronic [Recovered/Resolved]
  - Carpal tunnel syndrome [Recovered/Resolved with Sequelae]
  - Alanine aminotransferase increased [Unknown]
  - Red blood cell count decreased [Unknown]
  - Abdominal pain upper [Not Recovered/Not Resolved]
  - Blood glucose increased [Unknown]
  - Aspartate aminotransferase increased [Unknown]
  - Cholelithiasis [Unknown]
  - Biliary fibrosis [Unknown]
  - International normalised ratio decreased [Unknown]
  - Gallbladder fibrosis [Unknown]
  - Fibrosis [Unknown]
  - Hepatobiliary disease [Unknown]
  - White blood cell count increased [Unknown]
  - Laboratory test abnormal [Unknown]
  - Cholelithiasis [Recovered/Resolved]
  - Adverse food reaction [Unknown]
  - Arthroscopy [Recovered/Resolved with Sequelae]

NARRATIVE: CASE EVENT DATE: 2017
